FAERS Safety Report 17500808 (Version 1)
Quarter: 2020Q1

REPORT INFORMATION
  Report Type: Spontaneous
  Country: US (occurrence: US)
  Receive Date: 20200305
  Receipt Date: 20200305
  Transmission Date: 20200409
  Serious: Yes (Death, Hospitalization)
  Sender: FDA-Public Use
  Company Number: US-TEVA-2020-US-1193388

PATIENT
  Age: 40 Year
  Sex: Male

DRUGS (8)
  1. SODIUM BICARBONATE. [Suspect]
     Active Substance: SODIUM BICARBONATE
     Dosage: ONE DRIP
     Route: 050
  2. POTASSIUM [Suspect]
     Active Substance: POTASSIUM
     Route: 065
  3. CAFFEINE. [Suspect]
     Active Substance: CAFFEINE
     Indication: DRUG THERAPY
     Dosage: THE MAN INGESTED 81 PILLS OF A ^FAT BURNING MEDICATION^ WHICH CONTAINED CAFFEINE
     Route: 048
  4. XANTHINOL [Concomitant]
     Dosage: THE MAN INGESTED 81 PILLS OF A ^FAT BURNING MEDICATION^
     Route: 048
  5. YOHIMBINE [Suspect]
     Active Substance: YOHIMBINE
     Indication: DRUG THERAPY
     Dosage: THE MAN INGESTED 81 PILLS OF A ^FAT BURNING MEDICATION^ WHICH CONTAINED YOHIMBINE
     Route: 048
  6. EPHEDRA [Suspect]
     Active Substance: EPHEDRA
     Indication: DRUG THERAPY
     Dosage: THE MAN INGESTED 81 PILLS OF A ^FAT BURNING MEDICATION^ WHICH CONTAINED EPHEDRA EXTRACT
     Route: 048
  7. LIDOCAINE. [Suspect]
     Active Substance: LIDOCAINE
     Route: 065
  8. SODIUM BICARBONATE. [Suspect]
     Active Substance: SODIUM BICARBONATE
     Dosage: 11 AMPULES
     Route: 065

REACTIONS (2)
  - Drug ineffective [Unknown]
  - Toxicity to various agents [Fatal]
